FAERS Safety Report 7054050-X (Version None)
Quarter: 2010Q4

REPORT INFORMATION
  Report Type: 
  Country: None (occurrence: None)
  Receive Date: 20101020
  Receipt Date: 20101011
  Transmission Date: 20110411
  Serious: Yes (Other)
  Sender: FDA-Public Use
  Company Number: US-NAPPMUNDI-GBR-2010-0007159

PATIENT
  Age: 67 Year
  Sex: Female

DRUGS (3)
  1. MORPHINE SULFATE [Suspect]
     Indication: PAIN
     Route: 065
  2. DEMEROL [Suspect]
     Indication: PAIN
     Route: 065
  3. FENTANYL [Suspect]
     Indication: PAIN
     Route: 062

REACTIONS (3)
  - BRAIN INJURY [None]
  - DRUG PRESCRIBING ERROR [None]
  - RESPIRATORY ARREST [None]
